FAERS Safety Report 6697179-8 (Version None)
Quarter: 2010Q2

REPORT INFORMATION
  Report Type: 
  Country: None (occurrence: None)
  Receive Date: 20100426
  Receipt Date: 20100414
  Transmission Date: 20101027
  Serious: Yes (Other)
  Sender: FDA-Public Use
  Company Number: GB-PFIZER INC-2010046886

PATIENT
  Age: 52 Year
  Sex: Male

DRUGS (4)
  1. SUNITINIB MALATE [Suspect]
     Dosage: UNK
     Dates: start: 20090501, end: 20100301
  2. IMATINIB [Suspect]
     Indication: GASTROINTESTINAL STROMAL TUMOUR
     Dosage: 400 MG, 1X/DAY
     Dates: start: 20070301
  3. IMATINIB [Suspect]
     Dosage: 400 MG, 2X/DAY
     Dates: end: 20090501
  4. IMATINIB [Suspect]
     Dosage: 400 MG, 1X/DAY
     Dates: start: 20100301

REACTIONS (4)
  - DISEASE PROGRESSION [None]
  - FATIGUE [None]
  - GASTROINTESTINAL STROMAL TUMOUR [None]
  - MYOCARDIAL INFARCTION [None]
